FAERS Safety Report 6640275-1 (Version None)
Quarter: 2010Q1

REPORT INFORMATION
  Report Type: 
  Country: None (occurrence: None)
  Receive Date: 20100315
  Receipt Date: 20100302
  Transmission Date: 20100710
  Serious: Yes (Hospitalization, Other)
  Sender: FDA-Public Use
  Company Number: 003574

PATIENT
  Sex: Female
  Weight: 100 kg

DRUGS (14)
  1. ISOKET (ISOKET) [Suspect]
     Dosage: (84 TABLETS)
  2. PIRACETAM (PIRACETAM ) [Suspect]
     Dosage: (100 TABLETS)
  3. ACEMUC (ACEMUC 600) [Suspect]
     Dosage: (10 TABLETS)
  4. ALLOPURINOL (ALLOPURINOL 100) [Suspect]
     Dosage: (100 TABLETS)
  5. AMINEURIN (AMINEURIN 10) [Suspect]
     Dosage: (120 TABLETS)
  6. AMLODIPIN HEXAL /00972401/ (AMLODIPIN IIEXAL ) [Suspect]
     Dosage: (40 TABLETS)
  7. AMOXICILLIN [Suspect]
     Dosage: (10 TABLET)
  8. DICLO-DIVIDO (DICLO DIVIDO LONG) [Suspect]
     Dosage: (20 TABLET ORAL)
  9. DICLOFENAC (DICLODOC) [Suspect]
     Dosage: (20 TABLETS ORAL)
     Route: 048
  10. FORMOTEROL (FORMOTEROL) [Suspect]
     Dosage: (50 TABLETS)
  11. PENHEXAL /00001802/ (PENHEXAL 1.5 MEGA) [Suspect]
     Dosage: (20 TABLET)
  12. RAMIPRIL COMP (RAMIPRIL COMP 5/25) (NOT SPECIFIED) [Suspect]
     Dosage: (80 TABLET ORAL)
     Route: 048
  13. TORASEMID-RATIOPHARM (TORASEMID RATIOPHARM) [Suspect]
     Dosage: (110 TABLET)
  14. ALCOHOL /00002101/ (ALCOHOL) [Suspect]

REACTIONS (8)
  - ACIDOSIS [None]
  - DIASTOLIC HYPOTENSION [None]
  - DRUG TOXICITY [None]
  - HYPOTENSION [None]
  - MEGACOLON [None]
  - RENAL FAILURE [None]
  - SOMNOLENCE [None]
  - SUICIDE ATTEMPT [None]
